APPROVED DRUG PRODUCT: CORLANOR
Active Ingredient: IVABRADINE HYDROCHLORIDE
Strength: EQ 5MG BASE
Dosage Form/Route: TABLET;ORAL
Application: N206143 | Product #001
Applicant: AMGEN INC
Approved: Apr 15, 2015 | RLD: Yes | RS: No | Type: DISCN

PATENTS:
Patent 7867996 | Expires: Dec 12, 2026
Patent 7361649 | Expires: Feb 22, 2026
Patent 7879842 | Expires: Feb 22, 2026
Patent 7361650 | Expires: Feb 22, 2026
Patent 7879842*PED | Expires: Aug 22, 2026
Patent 7361649*PED | Expires: Aug 22, 2026
Patent 7361650*PED | Expires: Aug 22, 2026
Patent 7867996*PED | Expires: Jun 12, 2027